FAERS Safety Report 8534954-9 (Version None)
Quarter: 2012Q3

REPORT INFORMATION
  Report Type: 
  Country: None (occurrence: None)
  Receive Date: 20120724
  Receipt Date: 20120718
  Transmission Date: 20120928
  Serious: No
  Sender: FDA-Public Use
  Company Number: US-PFIZER INC-2012173824

PATIENT
  Sex: Female
  Weight: 66.667 kg

DRUGS (4)
  1. PRAMIPEXOLE [Concomitant]
     Indication: RESTLESS LEGS SYNDROME
     Dosage: 1 MG, DAILY
  2. SEPTRA [Suspect]
     Indication: CYSTITIS
     Dosage: UNK
     Dates: start: 20120711, end: 20120701
  3. HYDROCHLOROTHIAZIDE [Suspect]
     Indication: HYPERTENSION
     Dosage: 25 MG, DAILY
  4. LISINOPRIL [Suspect]
     Indication: HYPERTENSION
     Dosage: 20 MG, DAILY
     Dates: start: 20120701

REACTIONS (6)
  - SWOLLEN TONGUE [None]
  - FEELING COLD [None]
  - TREMOR [None]
  - HYPERTENSION [None]
  - SPEECH DISORDER [None]
  - BLOOD POTASSIUM DECREASED [None]
